FAERS Safety Report 18479834 (Version 1)
Quarter: 2020Q4

REPORT INFORMATION
  Report Type: Spontaneous
  Country: JP (occurrence: JP)
  Receive Date: 20201109
  Receipt Date: 20201109
  Transmission Date: 20210114
  Serious: Yes (Other)
  Sender: FDA-Public Use
  Company Number: JP-BAYER-2020-221413

PATIENT
  Age: 85 Year
  Sex: Male

DRUGS (4)
  1. ZYTIGA [Concomitant]
     Active Substance: ABIRATERONE ACETATE
  2. XTANDI [Concomitant]
     Active Substance: ENZALUTAMIDE
  3. ERLEADA [Concomitant]
     Active Substance: APALUTAMIDE
  4. NUBEQA [Suspect]
     Active Substance: DAROLUTAMIDE
     Indication: HORMONE-REFRACTORY PROSTATE CANCER

REACTIONS (1)
  - Hormone-refractory prostate cancer [Not Recovered/Not Resolved]
